FAERS Safety Report 17666229 (Version 1)
Quarter: 2020Q2

REPORT INFORMATION
  Report Type: Spontaneous
  Country: US (occurrence: US)
  Receive Date: 20200413
  Receipt Date: 20200413
  Transmission Date: 20200713
  Serious: Yes (Hospitalization)
  Sender: FDA-Public Use
  Company Number: None

PATIENT
  Age: 75 Year
  Sex: Male
  Weight: 114 kg

DRUGS (1)
  1. FLUOROURACIL (FLUOROURACIL 50MG/ML INJ) [Suspect]
     Active Substance: FLUOROURACIL
     Indication: CHOLANGIOCARCINOMA
     Route: 042
     Dates: start: 20200406, end: 20200408

REACTIONS (3)
  - Angina pectoris [None]
  - Blood pressure increased [None]
  - Viral test negative [None]

NARRATIVE: CASE EVENT DATE: 20200408
